FAERS Safety Report 8321113-8 (Version None)
Quarter: 2012Q2

REPORT INFORMATION
  Report Type: 
  Country: None (occurrence: None)
  Receive Date: 20120426
  Receipt Date: 20120418
  Transmission Date: 20120825
  Serious: Yes (Other)
  Sender: FDA-Public Use
  Company Number: IMP_05856_2012

PATIENT
  Age: 17 Year
  Sex: Female

DRUGS (1)
  1. MINOCYCLINE HCL [Suspect]
     Indication: ACNE
     Dosage: (100 MG DAILY)

REACTIONS (9)
  - NUCLEAR MAGNETIC RESONANCE IMAGING BRAIN ABNORMAL [None]
  - PAPILLOEDEMA [None]
  - NAUSEA [None]
  - BENIGN INTRACRANIAL HYPERTENSION [None]
  - VOMITING [None]
  - SOMNOLENCE [None]
  - RETINAL HAEMORRHAGE [None]
  - HEADACHE [None]
  - IRRITABILITY [None]
